FAERS Safety Report 14738622 (Version 2)
Quarter: 2018Q2

REPORT INFORMATION
  Report Type: Spontaneous
  Country: US (occurrence: BR)
  Receive Date: 20180409
  Receipt Date: 20180423
  Transmission Date: 20180711
  Serious: Yes (Hospitalization, Other)
  Sender: FDA-Public Use
  Company Number: US-SUNOVION-2018SUN001354

PATIENT
  Sex: Male
  Weight: 59 kg

DRUGS (6)
  1. LOSARTAN. [Concomitant]
     Active Substance: LOSARTAN
     Dosage: 50 MG, UNK
  2. GLYCOPYRROLATE. [Suspect]
     Active Substance: GLYCOPYRROLATE
     Indication: CHRONIC OBSTRUCTIVE PULMONARY DISEASE
     Dosage: 1 DF, QD (IN THE MORNING) (30 CAPSULES)
     Route: 055
     Dates: start: 2013
  3. ALENIA [Concomitant]
     Active Substance: BUDESONIDE\FORMOTEROL FUMARATE
     Dosage: UNK
     Dates: start: 2010
  4. SIMVASTATIN. [Concomitant]
     Active Substance: SIMVASTATIN
     Dosage: 20 MG, UNK
     Dates: start: 2011
  5. LEVOTHYROXIN [Concomitant]
     Active Substance: LEVOTHYROXINE
     Dosage: 50 MG, UNK
     Dates: start: 2005
  6. GLYCOPYRROLATE. [Suspect]
     Active Substance: GLYCOPYRROLATE
     Indication: BRONCHIECTASIS

REACTIONS (17)
  - Lung disorder [Unknown]
  - Vitamin D decreased [Recovering/Resolving]
  - Headache [Recovering/Resolving]
  - Coma [Recovering/Resolving]
  - H1N1 influenza [Recovering/Resolving]
  - Pneumonia [Recovering/Resolving]
  - Secretion discharge [Recovering/Resolving]
  - Lung infection [Recovering/Resolving]
  - Therapy non-responder [Recovering/Resolving]
  - Heart rate increased [Recovering/Resolving]
  - Skin disorder [Recovering/Resolving]
  - Insomnia [Recovering/Resolving]
  - Dyspnoea [Recovering/Resolving]
  - Malaise [Unknown]
  - Arterial rupture [Recovering/Resolving]
  - Pyrexia [Recovering/Resolving]
  - Pseudomonas infection [Recovering/Resolving]

NARRATIVE: CASE EVENT DATE: 2014
